FAERS Safety Report 18145754 (Version 1)
Quarter: 2020Q3

REPORT INFORMATION
  Report Type: Spontaneous
  Country: DE (occurrence: DE)
  Receive Date: 20200813
  Receipt Date: 20200813
  Transmission Date: 20201103
  Serious: Yes (Hospitalization)
  Sender: FDA-Public Use
  Company Number: DE-ANIPHARMA-2020-DE-000166

PATIENT
  Age: 78 Year
  Sex: Male

DRUGS (6)
  1. BISOPROLOL [Suspect]
     Active Substance: BISOPROLOL
     Dosage: 50 MG QD
     Route: 048
  2. CANDESARTAN. [Suspect]
     Active Substance: CANDESARTAN
     Indication: PRODUCT USED FOR UNKNOWN INDICATION
     Dosage: 16 MG QD
     Route: 048
  3. AMIODARONE [Suspect]
     Active Substance: AMIODARONE
     Dosage: 200 MG QD
     Route: 048
  4. TORASEMIDE [Suspect]
     Active Substance: TORSEMIDE
     Dosage: 40 MG QD
     Route: 048
  5. SPIRONOLACTONE. [Suspect]
     Active Substance: SPIRONOLACTONE
     Dosage: 50 MG QD
     Route: 048
  6. APIXABAN [Concomitant]
     Active Substance: APIXABAN
     Dosage: 2.5 MG BID
     Route: 048

REACTIONS (3)
  - Weight increased [Unknown]
  - Oedema peripheral [Unknown]
  - Renal impairment [Unknown]
